FAERS Safety Report 16672727 (Version 1)
Quarter: 2019Q3

REPORT INFORMATION
  Report Type: Spontaneous
  Country: US (occurrence: US)
  Receive Date: 20190620
  Receipt Date: 20190620
  Transmission Date: 20191004
  Serious: No
  Sender: FDA-Public Use
  Company Number: None

PATIENT
  Age: 55 Year
  Sex: Female
  Weight: 65.77 kg

DRUGS (1)
  1. DESVENLAFAXINE. [Suspect]
     Active Substance: DESVENLAFAXINE
     Indication: ANXIETY
     Route: 048
     Dates: start: 20190315

REACTIONS (7)
  - Disease recurrence [None]
  - Dizziness [None]
  - Depressed level of consciousness [None]
  - Nausea [None]
  - Drug ineffective [None]
  - Irritability [None]
  - Headache [None]
